FAERS Safety Report 8808524 (Version 1)
Quarter: 2012Q4

REPORT INFORMATION
  Report Type: Spontaneous
  Country: US (occurrence: None)
  Receive Date: 20120919
  Receipt Date: 20120919
  Transmission Date: 20130627
  Serious: Yes (Other)
  Sender: FDA-Public Use
  Company Number: US-2012-11385

PATIENT
  Age: 18 Month
  Sex: Male

DRUGS (5)
  1. BUSULFEX [Suspect]
     Indication: PERIPHERAL HEMOPOIETIC STEM CELL TRANSPLANT
     Route: 042
  2. FLUDARABINE (FLUDARABINE PHOSPHATE) [Concomitant]
  3. CYCLOPHOSPHAMIDE (CYCLOPHOSPHAMIDE) [Concomitant]
  4. ATG (ANTILYMPHOCYTE IMMUNOGLOBULIN (HORSE)) [Concomitant]
  5. CAMPATH (ALEMTUZUMAB) [Concomitant]

REACTIONS (2)
  - Complications of transplant surgery [None]
  - Acute graft versus host disease in skin [None]
